FAERS Safety Report 8973307 (Version 1)
Quarter: 2012Q4

REPORT INFORMATION
  Report Type: 
  Country: US (occurrence: US)
  Receive Date: 20121218
  Receipt Date: 20121218
  Transmission Date: 20130627
  Serious: No
  Sender: FDA-Public Use
  Company Number: US-BRISTOL-MYERS SQUIBB COMPANY-16440729

PATIENT
  Age: 49 Year
  Sex: Male
  Weight: 116.55 kg

DRUGS (5)
  1. ABILIFY [Suspect]
     Dates: start: 20110812, end: 20111230
  2. ADDERALL [Suspect]
  3. LUNESTA [Suspect]
  4. VISTARIL [Suspect]
     Indication: ANXIETY
     Dosage: Vistaril 50 mg twice daily as needed
  5. PRISTIQ [Suspect]

REACTIONS (2)
  - Weight increased [Recovered/Resolved]
  - Glycosylated haemoglobin increased [Unknown]
